FAERS Safety Report 4647856-5 (Version None)
Quarter: 2005Q2

REPORT INFORMATION
  Report Type: 
  Country: None (occurrence: None)
  Receive Date: 20050426
  Receipt Date: 20050418
  Transmission Date: 20051028
  Serious: Yes (Disabling)
  Sender: FDA-Public Use
  Company Number: 2005AP02339

PATIENT
  Age: 66 Year
  Sex: Male

DRUGS (8)
  1. ATENOLOL [Suspect]
     Indication: ILL-DEFINED DISORDER
     Dosage: 50 MG DAILY PO
     Route: 048
     Dates: start: 20030101, end: 20040914
  2. ATENOLOL [Suspect]
     Indication: ILL-DEFINED DISORDER
     Dosage: 50 MG DAILY PO
     Route: 048
     Dates: start: 20040101
  3. ATENOLOL [Suspect]
     Indication: ILL-DEFINED DISORDER
     Dosage: 50 MG DAILY PO
     Route: 048
     Dates: start: 20050316
  4. LIPITOR [Suspect]
     Indication: BLOOD CHOLESTEROL INCREASED
     Dosage: 10 MG DAILY PO
     Route: 048
     Dates: start: 20031001
  5. LIPITOR [Suspect]
     Indication: BLOOD CHOLESTEROL INCREASED
     Dosage: 20 MG DAILY PO
     Route: 048
     Dates: start: 20040406, end: 20040914
  6. NEURONTIN [Suspect]
     Indication: TRIGEMINAL NEURALGIA
     Dosage: 600 MG DAILY PO
     Route: 048
     Dates: start: 20040714
  7. NEURONTIN [Suspect]
     Indication: TRIGEMINAL NEURALGIA
     Dosage: 1800 MG DAILY PO
     Route: 048
     Dates: end: 20040914
  8. TEGRETOL [Suspect]
     Indication: TRIGEMINAL NEURALGIA
     Dosage: 200 MG DAILY PO
     Route: 048
     Dates: start: 20040524, end: 20040713

REACTIONS (5)
  - ATRIAL FIBRILLATION [None]
  - DRUG INEFFECTIVE [None]
  - MALAISE [None]
  - RASH GENERALISED [None]
  - TRIGEMINAL NEURALGIA [None]
